FAERS Safety Report 4697898-9 (Version None)
Quarter: 2005Q2

REPORT INFORMATION
  Report Type: 
  Country: None (occurrence: None)
  Receive Date: 20050621
  Receipt Date: 20050609
  Transmission Date: 20051028
  Serious: Yes (Other)
  Sender: FDA-Public Use
  Company Number: DE-2005-010132

PATIENT

DRUGS (1)
  1. MAGNEVIST [Suspect]
     Dosage: 1 DOSE

REACTIONS (1)
  - LUNG DISORDER [None]
